FAERS Safety Report 14355012 (Version 1)
Quarter: 2018Q1

REPORT INFORMATION
  Report Type: Spontaneous
  Country: US (occurrence: US)
  Receive Date: 20180105
  Receipt Date: 20180105
  Transmission Date: 20180509
  Serious: No
  Sender: FDA-Public Use
  Company Number: US-LUNDBECK-DKLU2036196

PATIENT
  Age: 68 Year
  Sex: Male

DRUGS (1)
  1. NORTHERA [Suspect]
     Active Substance: DROXIDOPA
     Indication: PRODUCT USED FOR UNKNOWN INDICATION
     Dosage: SCHEDULE A WITH TITRATION COMPLETE.

REACTIONS (3)
  - Fall [Unknown]
  - Headache [Unknown]
  - Gait disturbance [Unknown]

NARRATIVE: CASE EVENT DATE: 201708
